FAERS Safety Report 5971382-4 (Version None)
Quarter: 2008Q4

REPORT INFORMATION
  Report Type: 
  Country: None (occurrence: None)
  Receive Date: 20081130
  Receipt Date: 20081121
  Transmission Date: 20090506
  Serious: Yes (Other)
  Sender: FDA-Public Use
  Company Number: IN-PFIZER INC-2008099389

PATIENT
  Age: 47 Year
  Sex: Female

DRUGS (1)
  1. LYRICA [Suspect]
     Indication: BACK PAIN
     Route: 048
     Dates: start: 20081117, end: 20081118

REACTIONS (5)
  - HEADACHE [None]
  - LACK OF SPONTANEOUS SPEECH [None]
  - SOMNOLENCE [None]
  - SUDDEN HEARING LOSS [None]
  - VISION BLURRED [None]
